FAERS Safety Report 5119568-5 (Version None)
Quarter: 2006Q3

REPORT INFORMATION
  Report Type: 
  Country: None (occurrence: None)
  Receive Date: 20060928
  Receipt Date: 20060919
  Transmission Date: 20061208
  Serious: Yes (Other)
  Sender: FDA-Public Use
  Company Number: B0439422A

PATIENT
  Age: 70 Year
  Sex: Male

DRUGS (3)
  1. VALTREX [Suspect]
     Indication: DRUG USE FOR UNKNOWN INDICATION
  2. TRIMETHOPRIM + SULFAMETHOXAZOLE [Suspect]
     Indication: DRUG USE FOR UNKNOWN INDICATION
  3. ALEMTUZUMAB INJECTION (ALEMTUZUMAB) [Suspect]
     Indication: DRUG USE FOR UNKNOWN INDICATION
     Dosage: SEE IMAGE SUBCUTANE
     Route: 058

REACTIONS (8)
  - BACTERIA STOOL IDENTIFIED [None]
  - CACHEXIA [None]
  - CD4 LYMPHOCYTES DECREASED [None]
  - ESCHERICHIA INFECTION [None]
  - GASTROENTERITIS BACTERIAL [None]
  - GASTROINTESTINAL NECROSIS [None]
  - RENAL IMPAIRMENT [None]
  - WEIGHT DECREASED [None]
